FAERS Safety Report 14378874 (Version 1)
Quarter: 2018Q1

REPORT INFORMATION
  Report Type: Report from Study
  Country: GB (occurrence: GB)
  Receive Date: 20180112
  Receipt Date: 20180112
  Transmission Date: 20180509
  Serious: Yes (Hospitalization)
  Sender: FDA-Public Use
  Company Number: GB-ROCHE-2052346

PATIENT
  Sex: Female

DRUGS (4)
  1. OPIUM. [Concomitant]
     Active Substance: OPIUM
  2. CODEINE SULPHATE [Concomitant]
     Active Substance: CODEINE SULFATE
  3. PREDNISOLONE. [Concomitant]
     Active Substance: PREDNISOLONE
     Route: 065
  4. ROACTEMRA [Suspect]
     Active Substance: TOCILIZUMAB
     Indication: RHEUMATOID ARTHRITIS
     Route: 058
     Dates: start: 20150603

REACTIONS (5)
  - Rheumatoid arthritis [Unknown]
  - Lethargy [Unknown]
  - Pain [Unknown]
  - Joint effusion [Unknown]
  - Spinal disorder [Unknown]
